FAERS Safety Report 8767113 (Version 1)
Quarter: 2012Q4

REPORT INFORMATION
  Report Type: 
  Country: ES (occurrence: ES)
  Receive Date: 20120904
  Receipt Date: 20120904
  Transmission Date: 20130627
  Serious: Yes (Hospitalization, Other)
  Sender: FDA-Public Use
  Company Number: ES-ROXANE LABORATORIES, INC.-2012-RO-01785RO

PATIENT
  Age: 40 Year
  Sex: Male

DRUGS (5)
  1. PREDNISONE [Suspect]
     Indication: SYSTEMIC LUPUS ERYTHEMATOSUS
     Dosage: 10 mg
  2. METHOTREXATE [Suspect]
     Indication: SYSTEMIC LUPUS ERYTHEMATOSUS
  3. MYCOPHENOLATE MOFETIL [Suspect]
     Indication: SYSTEMIC LUPUS ERYTHEMATOSUS
     Dosage: 720 mg
  4. HYDROXYCHLOROQUINE [Suspect]
     Indication: SYSTEMIC LUPUS ERYTHEMATOSUS
  5. RITUXIMAB [Suspect]
     Indication: SYSTEMIC LUPUS ERYTHEMATOSUS
     Dates: start: 200804

REACTIONS (8)
  - Bursitis [Recovered/Resolved]
  - Atypical mycobacterial infection [Recovered/Resolved]
  - Chronic respiratory disease [Unknown]
  - Skin ulcer [Unknown]
  - Bone infarction [Unknown]
  - Osteonecrosis [Unknown]
  - Osteoarthritis [Unknown]
  - Device dislocation [Unknown]
